FAERS Safety Report 6089385-0 (Version None)
Quarter: 2009Q1

REPORT INFORMATION
  Report Type: 
  Country: None (occurrence: None)
  Receive Date: 20090224
  Receipt Date: 20090212
  Transmission Date: 20090719
  Serious: Yes (Other)
  Sender: FDA-Public Use
  Company Number: JP-ROCHE-610200

PATIENT
  Sex: Male
  Weight: 27 kg

DRUGS (2)
  1. TAMIFLU [Suspect]
     Indication: INFLUENZA
     Dosage: DRUG: TAMIFLU DRY SYRUP 3%.
     Route: 048
     Dates: start: 20090117, end: 20090121
  2. COCARL [Concomitant]
     Route: 048
     Dates: start: 20090117

REACTIONS (1)
  - ABNORMAL BEHAVIOUR [None]
